FAERS Safety Report 10754812 (Version 1)
Quarter: 2015Q1

REPORT INFORMATION
  Report Type: Spontaneous
  Country: US (occurrence: None)
  Receive Date: 20150130
  Receipt Date: 20150130
  Transmission Date: 20150721
  Serious: No
  Sender: FDA-Public Use
  Company Number: None

PATIENT
  Age: 36 Year
  Sex: Female
  Weight: 113.4 kg

DRUGS (2)
  1. LEVOFLOXACIN. [Suspect]
     Active Substance: LEVOFLOXACIN
     Indication: INFECTION
     Dosage: 5 PILLS ONE A DAY BY MOUTH
     Route: 048
     Dates: start: 20150128, end: 20150129
  2. LEVOFLOXACIN. [Suspect]
     Active Substance: LEVOFLOXACIN
     Indication: NEPHROLITHIASIS
     Dosage: 5 PILLS ONE A DAY BY MOUTH
     Route: 048
     Dates: start: 20150128, end: 20150129

REACTIONS (4)
  - Muscle spasms [None]
  - Muscle fatigue [None]
  - Pain in extremity [None]
  - Myalgia [None]

NARRATIVE: CASE EVENT DATE: 20150129
